FAERS Safety Report 8300879-7 (Version None)
Quarter: 2012Q2

REPORT INFORMATION
  Report Type: 
  Country: None (occurrence: None)
  Receive Date: 20120420
  Receipt Date: 20120412
  Transmission Date: 20120825
  Serious: Yes (Hospitalization, Other)
  Sender: FDA-Public Use
  Company Number: US-ASTELLAS-2012US004031

PATIENT
  Sex: Male
  Weight: 96 kg

DRUGS (3)
  1. ERLOTINIB HYDROCHLORIDE [Suspect]
     Indication: NON-SMALL CELL LUNG CANCER
     Dosage: 150 MG, UID/QD
     Route: 048
     Dates: start: 20120125, end: 20120408
  2. CETUXIMAB [Suspect]
     Dosage: 200 MG/M2, WEEKLY
     Route: 042
     Dates: start: 20120307, end: 20120404
  3. CETUXIMAB [Suspect]
     Indication: NON-SMALL CELL LUNG CANCER
     Dosage: 250 MG/M2, WEEKLY
     Route: 042
     Dates: start: 20120125, end: 20120307

REACTIONS (3)
  - PYREXIA [None]
  - HAEMOPTYSIS [None]
  - PNEUMONIA [None]
